FAERS Safety Report 18248619 (Version 1)
Quarter: 2020Q3

REPORT INFORMATION
  Report Type: Report from Study
  Country: US (occurrence: PL)
  Receive Date: 20200909
  Receipt Date: 20200909
  Transmission Date: 20201103
  Serious: Yes (Hospitalization, Other)
  Sender: FDA-Public Use
  Company Number: US-JNJFOC-20200843395

PATIENT
  Age: 42 Year
  Sex: Male
  Weight: 81 kg

DRUGS (7)
  1. STELARA [Suspect]
     Active Substance: USTEKINUMAB
  2. PARACETAMOL [Concomitant]
     Active Substance: ACETAMINOPHEN
  3. NORVASC [Concomitant]
     Active Substance: AMLODIPINE BESYLATE
     Indication: PRODUCT USED FOR UNKNOWN INDICATION
     Route: 065
     Dates: start: 2016
  4. SECUKINUMAB. [Suspect]
     Active Substance: SECUKINUMAB
     Indication: PSORIASIS
     Route: 058
     Dates: start: 20170502, end: 20170823
  5. STELARA [Suspect]
     Active Substance: USTEKINUMAB
     Indication: PSORIASIS
     Route: 058
     Dates: start: 20170502, end: 20170823
  6. BIBLOC [Concomitant]
     Active Substance: BISOPROLOL
     Indication: PRODUCT USED FOR UNKNOWN INDICATION
     Route: 065
     Dates: start: 2016
  7. DICLOBERL [Concomitant]
     Active Substance: DICLOFENAC SODIUM
     Indication: PRODUCT USED FOR UNKNOWN INDICATION
     Route: 065
     Dates: end: 20170828

REACTIONS (10)
  - Endocarditis [Not Recovered/Not Resolved]
  - Aortic valve incompetence [Unknown]
  - Deep vein thrombosis [Recovering/Resolving]
  - Gastrointestinal obstruction [Recovered/Resolved]
  - Product use issue [Unknown]
  - Renal infarct [Recovering/Resolving]
  - Duodenal ulcer [Unknown]
  - Mitral valve incompetence [Unknown]
  - Off label use [Unknown]
  - Cardiac failure chronic [Unknown]

NARRATIVE: CASE EVENT DATE: 20170725
